FAERS Safety Report 20881122 (Version 5)
Quarter: 2022Q3

REPORT INFORMATION
  Report Type: Spontaneous
  Country: US (occurrence: US)
  Receive Date: 20220526
  Receipt Date: 20220920
  Transmission Date: 20221026
  Serious: No
  Sender: FDA-Public Use
  Company Number: US-BoehringerIngelheim-2022-BI-172972

PATIENT
  Sex: Male

DRUGS (4)
  1. JARDIANCE [Suspect]
     Active Substance: EMPAGLIFLOZIN
     Indication: Diabetes mellitus
  2. GLIMEPIRIDE [Concomitant]
     Active Substance: GLIMEPIRIDE
     Indication: Product used for unknown indication
  3. METFORMIN [Concomitant]
     Active Substance: METFORMIN HYDROCHLORIDE
     Indication: Product used for unknown indication
  4. Levemir Flextouch insulin [Concomitant]
     Indication: Product used for unknown indication

REACTIONS (6)
  - Muscle spasms [Unknown]
  - Pollakiuria [Unknown]
  - Fatigue [Unknown]
  - Pain [Unknown]
  - Blood glucose increased [Unknown]
  - Wrong technique in product usage process [Unknown]

NARRATIVE: CASE EVENT DATE: 20220429
